FAERS Safety Report 13738930 (Version 1)
Quarter: 2017Q3

REPORT INFORMATION
  Report Type: Report from Study
  Country: US (occurrence: US)
  Receive Date: 20170710
  Receipt Date: 20170710
  Transmission Date: 20171127
  Serious: No
  Sender: FDA-Public Use
  Company Number: US-SAOL THERAPEUTICS-2017SAO00714

PATIENT
  Age: 39 Year
  Sex: Male

DRUGS (29)
  1. COMPOUNDED BACLOFEN [Suspect]
     Active Substance: BACLOFEN
     Dosage: 190.29 ?G, \DAY
     Dates: start: 20170119
  2. BUPIVACAINE. [Suspect]
     Active Substance: BUPIVACAINE
     Dosage: 9.860 MG, \DAY
     Route: 037
     Dates: start: 20160512, end: 20160818
  3. BUPIVICAINE [Suspect]
     Active Substance: BUPIVACAINE
     Dosage: 3.750 MG, \DAY
     Dates: start: 20160818, end: 20161117
  4. BUPIVICAINE [Suspect]
     Active Substance: BUPIVACAINE
     Dosage: 4.505 MG, \DAY
     Dates: start: 20161117, end: 20170119
  5. BUPIVICAINE [Suspect]
     Active Substance: BUPIVACAINE
     Dosage: 5.410 MG, \DAY
     Dates: start: 20170119
  6. CLONIDINE. [Suspect]
     Active Substance: CLONIDINE
     Dosage: 99.39 ?G, \DAY
     Dates: start: 20161117, end: 20170119
  7. COMPOUNDED BACLOFEN [Suspect]
     Active Substance: BACLOFEN
     Dosage: 149.09 ?G, \DAY
     Dates: start: 20161117, end: 20170119
  8. DILAUDID [Suspect]
     Active Substance: HYDROMORPHONE HYDROCHLORIDE
     Dosage: 0.3003 MG, \DAY
     Dates: start: 20161117, end: 20170119
  9. DILAUDID [Suspect]
     Active Substance: HYDROMORPHONE HYDROCHLORIDE
     Dosage: 0.6343 MG, \DAY
     Dates: start: 20170119
  10. COMPOUNDED BACLOFEN [Suspect]
     Active Substance: BACLOFEN
     Dosage: 90.10 ?G, \DAY
     Dates: start: 20161117, end: 20170119
  11. DILAUDID [Suspect]
     Active Substance: HYDROMORPHONE HYDROCHLORIDE
     Dosage: 0.3287 MG, \DAY
     Route: 037
     Dates: start: 20160512, end: 20160818
  12. DILAUDID [Suspect]
     Active Substance: HYDROMORPHONE HYDROCHLORIDE
     Dosage: 0.4073 MG, \DAY
     Dates: start: 20160818, end: 20161117
  13. BUPIVICAINE [Suspect]
     Active Substance: BUPIVACAINE
     Dosage: 6.110 MG, \DAY
     Dates: start: 20160818, end: 20161117
  14. CLONIDINE. [Suspect]
     Active Substance: CLONIDINE
     Dosage: 72.13 ?G, \DAY
     Dates: start: 20170119
  15. COMPOUNDED BACLOFEN [Suspect]
     Active Substance: BACLOFEN
     Dosage: 98.60 ?G, \DAY
     Route: 037
     Dates: start: 20160512, end: 20160818
  16. DILAUDID [Suspect]
     Active Substance: HYDROMORPHONE HYDROCHLORIDE
     Dosage: 0.2500 MG, \DAY
     Route: 037
     Dates: start: 20160512, end: 20161117
  17. DILAUDID [Suspect]
     Active Substance: HYDROMORPHONE HYDROCHLORIDE
     Dosage: 0.4970 MG, \DAY
     Dates: start: 20161117, end: 20170119
  18. BUPIVICAINE [Suspect]
     Active Substance: BUPIVACAINE
     Dosage: 7.454 MG, \DAY
     Dates: start: 20161117, end: 20170119
  19. CLONIDINE. [Suspect]
     Active Substance: CLONIDINE
     Dosage: 50.01 ?G, \DAY
     Route: 037
     Dates: start: 20160512, end: 20161117
  20. COMPOUNDED BACLOFEN [Suspect]
     Active Substance: BACLOFEN
     Dosage: 75.01 ?G, \DAY
     Route: 037
     Dates: start: 20160512, end: 20161117
  21. COMPOUNDED BACLOFEN [Suspect]
     Active Substance: BACLOFEN
     Dosage: 108.19 ?G, \DAY
     Dates: start: 20170119
  22. BUPIVACAINE. [Suspect]
     Active Substance: BUPIVACAINE
     Dosage: 7.501 MG, \DAY
     Route: 037
     Dates: start: 20160512, end: 20160818
  23. BUPIVICAINE [Suspect]
     Active Substance: BUPIVACAINE
     Dosage: 9.514 MG, \DAY
     Dates: start: 20170119
  24. COMPOUNDED BACLOFEN [Suspect]
     Active Substance: BACLOFEN
     Dosage: 122.9 ?G, \DAY
     Dates: start: 20160818, end: 20161117
  25. CLONIDINE. [Suspect]
     Active Substance: CLONIDINE
     Dosage: 81.46 ?G, \DAY
     Dates: start: 20160808, end: 20161117
  26. CLONIDINE. [Suspect]
     Active Substance: CLONIDINE
     Dosage: 126.86 ?G, \DAY
     Dates: start: 20170119
  27. DILAUDID [Suspect]
     Active Substance: HYDROMORPHONE HYDROCHLORIDE
     Dosage: 0.3606 MG, \DAY
     Dates: start: 20170119
  28. CLONIDINE. [Suspect]
     Active Substance: CLONIDINE
     Dosage: 65.73 ?G, \DAY
     Route: 037
     Dates: start: 20160512, end: 20160808
  29. CLONIDINE. [Suspect]
     Active Substance: CLONIDINE
     Dosage: 60.07 ?G, \DAY
     Dates: start: 20161117, end: 20170119

REACTIONS (4)
  - Dehydration [Recovered/Resolved]
  - Implant site pain [Recovered/Resolved]
  - Dysuria [Recovered/Resolved]
  - Hypoaesthesia [Recovered/Resolved]

NARRATIVE: CASE EVENT DATE: 20160818
